FAERS Safety Report 25038002 (Version 1)
Quarter: 2025Q1

REPORT INFORMATION
  Report Type: Spontaneous
  Country: BE (occurrence: BE)
  Receive Date: 20250304
  Receipt Date: 20250304
  Transmission Date: 20250409
  Serious: Yes (Other)
  Sender: MYLAN
  Company Number: None

PATIENT
  Sex: Female

DRUGS (4)
  1. ZOLPIDEM [Suspect]
     Active Substance: ZOLPIDEM TARTRATE
     Indication: Product used for unknown indication
  2. ZOLPIDEM [Suspect]
     Active Substance: ZOLPIDEM TARTRATE
     Route: 065
  3. ZOLPIDEM [Suspect]
     Active Substance: ZOLPIDEM TARTRATE
     Route: 065
  4. ZOLPIDEM [Suspect]
     Active Substance: ZOLPIDEM TARTRATE

REACTIONS (2)
  - Pharmaceutical nomadism [Unknown]
  - Intentional product misuse [Unknown]
